FAERS Safety Report 15221973 (Version 4)
Quarter: 2018Q4

REPORT INFORMATION
  Report Type: Spontaneous
  Country: US (occurrence: US)
  Receive Date: 20180731
  Receipt Date: 20181210
  Transmission Date: 20190204
  Serious: Yes (Other)
  Sender: FDA-Public Use
  Company Number: US-ALLERGAN-1837223US

PATIENT
  Age: 72 Year
  Sex: Male

DRUGS (1)
  1. RESTASIS [Suspect]
     Active Substance: CYCLOSPORINE
     Indication: DRY EYE
     Dosage: 2 GTT, BID
     Route: 047
     Dates: start: 201801

REACTIONS (5)
  - Macular hole [Recovering/Resolving]
  - Eye irritation [Unknown]
  - Vitreous floaters [Not Recovered/Not Resolved]
  - Eye pain [Unknown]
  - Vision blurred [Unknown]

NARRATIVE: CASE EVENT DATE: 2018
